FAERS Safety Report 11655576 (Version 1)
Quarter: 2015Q4

REPORT INFORMATION
  Report Type: Spontaneous
  Country: JP (occurrence: JP)
  Receive Date: 20151023
  Receipt Date: 20151023
  Transmission Date: 20160304
  Serious: Yes (Other)
  Sender: FDA-Public Use
  Company Number: JP-AKORN PHARMACEUTICALS-2015AKN00605

PATIENT
  Age: 47 Year
  Sex: Female

DRUGS (18)
  1. LIVOSTIN [Concomitant]
     Active Substance: LEVOCABASTINE HYDROCHLORIDE
     Dosage: UNK GTT, UNK
     Route: 047
     Dates: end: 20120510
  2. ETIZOLAM [Concomitant]
     Active Substance: ETIZOLAM
     Dosage: UNK TABLETS, UNK
     Dates: start: 20131112
  3. MYSLEE [Concomitant]
     Active Substance: ZOLPIDEM TARTRATE
     Dosage: UNK TABLETS, UNK
     Dates: start: 20131205
  4. TAPCOM [Concomitant]
     Dosage: UNK
     Dates: start: 20141210
  5. NEXIUM [Concomitant]
     Active Substance: ESOMEPRAZOLE MAGNESIUM
     Dosage: UNK
     Dates: start: 20131205
  6. CHOTO-SAN [Concomitant]
  7. DAI-KENCHU-TO [Concomitant]
     Active Substance: MALTOSE
     Dosage: 3 GRANULES, UNK
  8. ZYPREXA [Concomitant]
     Active Substance: OLANZAPINE
     Dosage: UNK TABLETS, UNK
     Dates: start: 20131205
  9. RIKKUNSHI [Concomitant]
     Dosage: GRANULES
     Dates: start: 20131031
  10. GASMOTIN [Concomitant]
     Active Substance: MOSAPRIDE CITRATE
     Dosage: UNK TABLETS, UNK
     Dates: start: 20131031, end: 20140215
  11. MAGMITT [Concomitant]
     Active Substance: MAGNESIUM OXIDE
     Dosage: UNK TABLETS, UNK
     Dates: start: 20141212
  12. ALPHAGAN P [Concomitant]
     Active Substance: BRIMONIDINE TARTRATE
     Dosage: UNK
     Route: 001
     Dates: start: 20150424
  13. HOCHU-EKKL-TO [Concomitant]
     Dosage: GRANULES
     Dates: start: 20150728
  14. CRAVIT [Concomitant]
     Active Substance: LEVOFLOXACIN
     Dosage: UNK TABLETS, UNK
     Dates: start: 20131031, end: 20131113
  15. ZIOPTAN [Suspect]
     Active Substance: TAFLUPROST
     Indication: OPEN ANGLE GLAUCOMA
     Dosage: 1 GTT, QD, OU (EACH EYE)
     Route: 047
     Dates: start: 20120824, end: 20141210
  16. SHINLUCK [Concomitant]
     Active Substance: SODIUM PICOSULFATE
     Dosage: UNK
     Dates: start: 20141212, end: 20141222
  17. BERIZYM [Concomitant]
     Active Substance: CELLULASE\DIASTASE\LIPASE
     Dosage: UNK
     Dates: start: 20150416
  18. GLANATEC [Concomitant]
     Dosage: UNK
     Dates: start: 20150821

REACTIONS (5)
  - Abdominal discomfort [Unknown]
  - Gastroenteritis [Recovered/Resolved]
  - Glaucoma [Unknown]
  - Gastric cancer [Unknown]
  - Seasonal allergy [Recovered/Resolved]

NARRATIVE: CASE EVENT DATE: 20130308
